FAERS Safety Report 4399340-4 (Version None)
Quarter: 2004Q3

REPORT INFORMATION
  Report Type: 
  Country: None (occurrence: None)
  Receive Date: 20040712
  Receipt Date: 20030219
  Transmission Date: 20050211
  Serious: Yes (Other)
  Sender: FDA-Public Use
  Company Number: US_0407104093

PATIENT
  Age: 79 Year
  Sex: Female

DRUGS (1)
  1. EVISTA [Suspect]

REACTIONS (5)
  - COLECTOMY PARTIAL [None]
  - COLITIS [None]
  - DIVERTICULITIS [None]
  - DRUG INTOLERANCE [None]
  - LARGE INTESTINAL ULCER [None]
